FAERS Safety Report 5526176-0 (Version None)
Quarter: 2007Q4

REPORT INFORMATION
  Report Type: 
  Country: None (occurrence: None)
  Receive Date: 20071120
  Receipt Date: 20071105
  Transmission Date: 20080405
  Serious: Yes (Death)
  Sender: FDA-Public Use
  Company Number: 2007BM000169

PATIENT
  Age: 75 Year
  Sex: Female

DRUGS (4)
  1. PREDNISONE [Suspect]
     Indication: LUNG ABSCESS
  2. METHOTREXATE [Suspect]
  3. ORAPRED [Suspect]
  4. METHOTREXATE [Concomitant]

REACTIONS (6)
  - ALPHA HAEMOLYTIC STREPTOCOCCAL INFECTION [None]
  - ASTHENIA [None]
  - BRONCHOALVEOLAR LAVAGE ABNORMAL [None]
  - ILL-DEFINED DISORDER [None]
  - LUNG ABSCESS [None]
  - MICROCOCCUS INFECTION [None]
